FAERS Safety Report 6001679-3 (Version None)
Quarter: 2008Q4

REPORT INFORMATION
  Report Type: 
  Country: None (occurrence: None)
  Receive Date: 20081215
  Receipt Date: 20071228
  Transmission Date: 20090506
  Serious: No
  Sender: FDA-Public Use
  Company Number: US-B.I. PHARMACEUTICALS,INC./RIDGEFIELD-2008-BP-00057BP

PATIENT
  Sex: Female

DRUGS (9)
  1. SPIRIVA [Suspect]
     Indication: CHRONIC OBSTRUCTIVE PULMONARY DISEASE
     Dosage: 18MCG
     Route: 055
     Dates: start: 20071115
  2. SPIRIVA [Suspect]
     Indication: BRONCHIECTASIS
  3. NORVASC [Concomitant]
     Indication: HYPERTENSION
     Route: 048
  4. NADOLOL [Concomitant]
     Indication: HYPERTENSION
     Route: 048
  5. HYDROCHLOROTHIAZIDE [Concomitant]
     Indication: HYPERTENSION
     Route: 048
  6. TACRINE [Concomitant]
     Route: 048
  7. TYLENOL (CAPLET) [Concomitant]
     Route: 048
  8. LEVAQUIN [Concomitant]
     Indication: BRONCHIECTASIS
     Route: 048
  9. AMOXILIN [Concomitant]
     Indication: BRONCHIECTASIS
     Route: 048

REACTIONS (1)
  - DRY MOUTH [None]
